FAERS Safety Report 19078235 (Version 1)
Quarter: 2021Q1

REPORT INFORMATION
  Report Type: Report from Study
  Country: CA (occurrence: CA)
  Receive Date: 20210331
  Receipt Date: 20210331
  Transmission Date: 20210420
  Serious: Yes (Other)
  Sender: FDA-Public Use
  Company Number: CA-SAMSUNG BIOEPIS-SB-2021-07855

PATIENT
  Age: 5 Year
  Sex: Male
  Weight: 14.2 kg

DRUGS (1)
  1. RENFLEXIS [Suspect]
     Active Substance: INFLIXIMAB-ABDA
     Indication: COLITIS ULCERATIVE
     Dosage: VIAL
     Route: 065
     Dates: start: 20210311

REACTIONS (4)
  - Abdominal pain [Unknown]
  - Weight decreased [Unknown]
  - Product use issue [Unknown]
  - Haemorrhage [Unknown]
